FAERS Safety Report 19403392 (Version 11)
Quarter: 2022Q1

REPORT INFORMATION
  Report Type: Report from Study
  Country: CN (occurrence: None)
  Receive Date: 20210610
  Receipt Date: 20220302
  Transmission Date: 20220424
  Serious: Yes (Hospitalization)
  Sender: FDA-Public Use
  Company Number: CN-ROCHE-2844538

PATIENT
  Age: 61 Year
  Sex: Male
  Weight: 60 kg

DRUGS (37)
  1. TIRAGOLUMAB [Suspect]
     Active Substance: TIRAGOLUMAB
     Indication: Small cell lung cancer extensive stage
     Dosage: MOST RECENT DOSE OF BLINDED TIRAGOLUMAB WAS ADMINISTERED ON 11/MAY/2021 (600 MG) PRIOR TO AE/SAE
     Route: 042
     Dates: start: 20210420
  2. ATEZOLIZUMAB [Suspect]
     Active Substance: ATEZOLIZUMAB
     Indication: Small cell lung cancer extensive stage
     Dosage: ON 11/MAY/2021, HE RECEIVED MOST RECENT DOSE OF ATEZOLIZUMAB (1200 MG) PRIOR TO AE AND SAE ONSET
     Route: 042
     Dates: start: 20210420
  3. CARBOPLATIN [Suspect]
     Active Substance: CARBOPLATIN
     Indication: Small cell lung cancer extensive stage
     Dosage: ON 11/MAY/2021, HE RECEIVED MOST RECENT DOSE OF CARBOPLATIN (422 MG) PRIOR TO AE AND SAE ONSET
     Route: 042
     Dates: start: 20210420
  4. ETOPOSIDE [Suspect]
     Active Substance: ETOPOSIDE
     Indication: Small cell lung cancer extensive stage
     Dosage: ON 13/MAY/2021, HE RECEIVED MOST RECENT DOSE OF ETOPOSIDE (169 MG) PRIOR TO AE AND SAE ONSET
     Route: 042
     Dates: start: 20210420
  5. MEGESTROL ACETATE [Concomitant]
     Active Substance: MEGESTROL ACETATE
     Route: 048
     Dates: start: 20210421
  6. FILGRASTIM [Concomitant]
     Active Substance: FILGRASTIM
     Dates: start: 20210506, end: 20210508
  7. FILGRASTIM [Concomitant]
     Active Substance: FILGRASTIM
     Dates: start: 20210625, end: 20210626
  8. FILGRASTIM [Concomitant]
     Active Substance: FILGRASTIM
     Dates: start: 20210719, end: 20210719
  9. EMEND [Concomitant]
     Active Substance: APREPITANT
     Dates: start: 20210511, end: 20210702
  10. POTASSIUM CHLORIDE [Concomitant]
     Active Substance: POTASSIUM CHLORIDE
     Dates: start: 20210511, end: 20210513
  11. LANSOPRAZOLE [Concomitant]
     Active Substance: LANSOPRAZOLE
     Dates: start: 20210511, end: 20210513
  12. EGG PHOSPHOLIPIDS\GLYCERIN\SOYBEAN OIL [Concomitant]
     Active Substance: EGG PHOSPHOLIPIDS\GLYCERIN\SOYBEAN OIL
     Dates: start: 20210511, end: 20210513
  13. METOCLOPRAMIDE HYDROCHLORIDE [Concomitant]
     Active Substance: METOCLOPRAMIDE HYDROCHLORIDE
     Dates: start: 20210513, end: 20210513
  14. METOCLOPRAMIDE HYDROCHLORIDE [Concomitant]
     Active Substance: METOCLOPRAMIDE HYDROCHLORIDE
     Dates: start: 20210606, end: 20210606
  15. METOCLOPRAMIDE HYDROCHLORIDE [Concomitant]
     Active Substance: METOCLOPRAMIDE HYDROCHLORIDE
     Dates: start: 20210701, end: 20210701
  16. ONDANSETRON HYDROCHLORIDE [Concomitant]
     Active Substance: ONDANSETRON HYDROCHLORIDE
     Dates: start: 20210514, end: 20210519
  17. ONDANSETRON HYDROCHLORIDE [Concomitant]
     Active Substance: ONDANSETRON HYDROCHLORIDE
     Dates: start: 20210604, end: 20210606
  18. ONDANSETRON HYDROCHLORIDE [Concomitant]
     Active Substance: ONDANSETRON HYDROCHLORIDE
     Dates: start: 20210608, end: 20210613
  19. ONDANSETRON HYDROCHLORIDE [Concomitant]
     Active Substance: ONDANSETRON HYDROCHLORIDE
     Dates: start: 20210630, end: 20210702
  20. ONDANSETRON HYDROCHLORIDE [Concomitant]
     Active Substance: ONDANSETRON HYDROCHLORIDE
     Dates: start: 20210703, end: 20210704
  21. UNSPECIFIED INGREDIENT [Concomitant]
     Active Substance: UNSPECIFIED INGREDIENT
     Dates: start: 20210601, end: 20210719
  22. POTASSIUM CHLORIDE [Concomitant]
     Active Substance: POTASSIUM CHLORIDE
     Dates: start: 20210603, end: 20210607
  23. POTASSIUM CHLORIDE [Concomitant]
     Active Substance: POTASSIUM CHLORIDE
     Dates: start: 20210628, end: 20210702
  24. PANTOPRAZOLE SODIUM [Concomitant]
     Active Substance: PANTOPRAZOLE SODIUM
     Dates: start: 20210604, end: 20210606
  25. PANTOPRAZOLE SODIUM [Concomitant]
     Active Substance: PANTOPRAZOLE SODIUM
     Dates: start: 20210629, end: 20210702
  26. VITAMIN C [Concomitant]
     Active Substance: ASCORBIC ACID
     Dates: start: 20210603, end: 20210603
  27. VITAMIN C [Concomitant]
     Active Substance: ASCORBIC ACID
     Dates: start: 20210628, end: 20210702
  28. VITAMIN B6 [Concomitant]
     Active Substance: PYRIDOXINE HYDROCHLORIDE
     Dates: start: 20210603, end: 20210603
  29. VITAMIN B6 [Concomitant]
     Active Substance: PYRIDOXINE HYDROCHLORIDE
     Dates: start: 20210628, end: 20210702
  30. AMINO ACIDS [Concomitant]
     Active Substance: AMINO ACIDS
     Dates: start: 20210603, end: 20210603
  31. PROMETHAZINE HYDROCHLORIDE [Concomitant]
     Active Substance: PROMETHAZINE HYDROCHLORIDE
     Dates: start: 20210606, end: 20210606
  32. TORSEMIDE [Concomitant]
     Active Substance: TORSEMIDE
     Dates: start: 20210702, end: 20210702
  33. LORATADINE [Concomitant]
     Active Substance: LORATADINE
     Dates: start: 20210630, end: 20210706
  34. GLYCOSAMINOGLYCANS [Concomitant]
     Active Substance: GLYCOSAMINOGLYCANS
     Dates: start: 20210701, end: 20210707
  35. LEUCOGEN TABLETS [Concomitant]
     Dates: start: 20210713, end: 20220108
  36. ERYTHROPOIETIN [Concomitant]
     Active Substance: ERYTHROPOIETIN
     Indication: Anaemia
     Dates: start: 20210719, end: 20210719
  37. RIVAROXABAN [Concomitant]
     Active Substance: RIVAROXABAN
     Dates: start: 20210720, end: 20220108

REACTIONS (2)
  - Vena cava thrombosis [Recovering/Resolving]
  - Pelvic venous thrombosis [Recovering/Resolving]

NARRATIVE: CASE EVENT DATE: 20210601
